FAERS Safety Report 24877066 (Version 5)
Quarter: 2025Q3

REPORT INFORMATION
  Report Type: Spontaneous
  Country: CA (occurrence: CA)
  Receive Date: 20250123
  Receipt Date: 20250925
  Transmission Date: 20251020
  Serious: Yes (Other)
  Sender: CELLTRION
  Company Number: CA-CELLTRION INC.-2024CA025006

PATIENT

DRUGS (4)
  1. YUFLYMA [Suspect]
     Active Substance: ADALIMUMAB-AATY
     Indication: Crohn^s disease
     Dosage: 40 MG, Q2WEEKS/40MG SC Q2W
     Route: 058
     Dates: start: 20240423
  2. YUFLYMA [Suspect]
     Active Substance: ADALIMUMAB-AATY
     Dosage: 40 MG, Q2WEEKS
     Route: 058
     Dates: start: 20240925
  3. VITAMIN B12 [Concomitant]
     Active Substance: CYANOCOBALAMIN
     Indication: Product used for unknown indication
     Route: 065
  4. PREDNISONE [Concomitant]
     Active Substance: PREDNISONE
     Indication: Product used for unknown indication
     Route: 065

REACTIONS (5)
  - Crohn^s disease [Unknown]
  - Product dose omission issue [Unknown]
  - Therapy interrupted [Unknown]
  - Product availability issue [Unknown]
  - Therapy cessation [Unknown]
